FAERS Safety Report 15553673 (Version 2)
Quarter: 2018Q4

REPORT INFORMATION
  Report Type: Report from Study
  Country: None (occurrence: US)
  Receive Date: 20181026
  Receipt Date: 20181206
  Transmission Date: 20190205
  Serious: Yes (Hospitalization)
  Sender: FDA-Public Use
  Company Number: US-ABBVIE-18K-163-2533619-00

PATIENT
  Sex: Male
  Weight: 77.18 kg

DRUGS (5)
  1. DICLOFORTE [Concomitant]
     Indication: PAIN
  2. KLONOPIN [Concomitant]
     Active Substance: CLONAZEPAM
     Indication: PRODUCT USED FOR UNKNOWN INDICATION
  3. RASAGILINE. [Concomitant]
     Active Substance: RASAGILINE
     Indication: AMNESIA
  4. HUMIRA [Suspect]
     Active Substance: ADALIMUMAB
     Indication: RHEUMATOID ARTHRITIS
     Route: 058
     Dates: start: 201805
  5. LYRICA [Concomitant]
     Active Substance: PREGABALIN
     Indication: INSOMNIA

REACTIONS (5)
  - Seizure [Recovering/Resolving]
  - Fall [Unknown]
  - Head injury [Unknown]
  - Intervertebral disc protrusion [Unknown]
  - Cervical cord compression [Unknown]
